FAERS Safety Report 24959354 (Version 1)
Quarter: 2025Q1

REPORT INFORMATION
  Report Type: Spontaneous
  Country: AU (occurrence: AU)
  Receive Date: 20250212
  Receipt Date: 20250212
  Transmission Date: 20250409
  Serious: Yes (Death)
  Sender: MYLAN
  Company Number: AU-MYLANLABS-2025M1012263

PATIENT
  Sex: Male

DRUGS (1)
  1. CLOZARIL [Suspect]
     Active Substance: CLOZAPINE
     Indication: Schizophrenia
     Route: 048
     Dates: start: 19980606

REACTIONS (2)
  - Death [Fatal]
  - Palliative care [Unknown]
